FAERS Safety Report 5798665-5 (Version None)
Quarter: 2008Q3

REPORT INFORMATION
  Report Type: 
  Country: None (occurrence: None)
  Receive Date: 20080702
  Receipt Date: 20080625
  Transmission Date: 20090109
  Serious: Yes (Other)
  Sender: FDA-Public Use
  Company Number: US-AVENTIS-200813995US

PATIENT

DRUGS (3)
  1. ANZEMET [Suspect]
     Dosage: DOSE: UNK
  2. DOCETAXEL [Concomitant]
     Indication: BREAST CANCER
     Dosage: DOSE: UNK
  3. CYCLOPHOSPHAMIDE [Concomitant]
     Indication: BREAST CANCER
     Dosage: DOSE: UNK

REACTIONS (2)
  - CLOSTRIDIAL INFECTION [None]
  - DIARRHOEA [None]
